FAERS Safety Report 9792525 (Version 1)
Quarter: 2013Q4

REPORT INFORMATION
  Report Type: Spontaneous
  Country: US (occurrence: None)
  Receive Date: 20131231
  Receipt Date: 20131231
  Transmission Date: 20140711
  Serious: Yes (Hospitalization, Disabling, Other)
  Sender: FDA-Public Use
  Company Number: None

PATIENT
  Age: 48 Year
  Sex: Female
  Weight: 87.54 kg

DRUGS (13)
  1. LISINOPRIL [Suspect]
     Indication: BLOOD CHOLESTEROL INCREASED
     Route: 048
     Dates: start: 20120613, end: 20131216
  2. ATENOLOL [Suspect]
  3. PANTOPRAZOLE [Suspect]
  4. CRESTOR [Suspect]
  5. ZOLPIDEM TARTRATE [Suspect]
  6. NAPROXEN [Suspect]
  7. BUPROPION HCL [Suspect]
  8. CLONAZEPAM [Suspect]
  9. AMBIEN [Concomitant]
  10. PROTONIX [Concomitant]
  11. WELLBUTRIN XL [Concomitant]
  12. B12 [Concomitant]
  13. ZYRTEC [Concomitant]

REACTIONS (5)
  - Pancreatitis [None]
  - Liver disorder [None]
  - Blood pressure increased [None]
  - Uterine enlargement [None]
  - Blood test abnormal [None]
